FAERS Safety Report 11258522 (Version 2)
Quarter: 2015Q3

REPORT INFORMATION
  Report Type: Spontaneous
  Country: GB (occurrence: None)
  Receive Date: 20150708
  Receipt Date: 20150723
  Transmission Date: 20151125
  Serious: Yes (Other)
  Sender: FDA-Public Use
  Company Number: GB-H14001-15-01012

PATIENT
  Age: 69 Year
  Sex: Female

DRUGS (4)
  1. ZOTON (LANSOPRAZOLE) [Concomitant]
  2. CO-CODAMOL (PANADEINE CO) (CODEINE PHSPHATE, PARACETAMOL) [Concomitant]
  3. CO-AMOXICLAV [Suspect]
     Active Substance: AMOXICILLIN\CLAVULANIC ACID
     Indication: PRODUCT USED FOR UNKNOWN INDICATION
     Dates: start: 20150306, end: 201503
  4. ALVERINE CITRATE (ALVERINE CITRATE) [Concomitant]

REACTIONS (8)
  - Faeces discoloured [None]
  - Gamma-glutamyltransferase increased [None]
  - Contusion [None]
  - Rash pruritic [None]
  - Chromaturia [None]
  - Liver function test abnormal [None]
  - Malaise [None]
  - Rash erythematous [None]

NARRATIVE: CASE EVENT DATE: 2015
